FAERS Safety Report 5896196-5 (Version None)
Quarter: 2008Q3

REPORT INFORMATION
  Report Type: 
  Country: None (occurrence: None)
  Receive Date: 20080924
  Receipt Date: 20070504
  Transmission Date: 20090109
  Serious: Yes (Other)
  Sender: FDA-Public Use
  Company Number: US-ASTRAZENECA-2007UW02368

PATIENT
  Age: 19873 Day
  Sex: Male
  Weight: 108.9 kg

DRUGS (9)
  1. SEROQUEL [Suspect]
     Indication: BORDERLINE PERSONALITY DISORDER
     Dosage: 100-400 MG
     Route: 048
     Dates: start: 20031013
  2. SEROQUEL [Suspect]
     Indication: SLEEP DISORDER
     Dosage: 100-400 MG
     Route: 048
     Dates: start: 20031013
  3. SEROQUEL [Suspect]
     Route: 048
     Dates: start: 20030805, end: 20031013
  4. SEROQUEL [Suspect]
     Route: 048
     Dates: start: 20030805, end: 20031013
  5. ZYPREXA [Suspect]
     Indication: BIPOLAR DISORDER
     Dates: start: 20031013, end: 20031102
  6. GEODON [Concomitant]
     Dates: start: 20060215
  7. GEODON [Concomitant]
     Dates: start: 20040701
  8. DEPAKOTE [Concomitant]
     Dates: start: 20040812, end: 20050601
  9. HALDOL [Concomitant]
     Route: 042
     Dates: start: 20051101

REACTIONS (3)
  - HYPERTENSION [None]
  - SUICIDAL IDEATION [None]
  - TYPE 2 DIABETES MELLITUS [None]
